FAERS Safety Report 6542389-3 (Version None)
Quarter: 2010Q1

REPORT INFORMATION
  Report Type: 
  Country: None (occurrence: None)
  Receive Date: 20100114
  Receipt Date: 20100114
  Transmission Date: 20100710
  Serious: Yes (Other)
  Sender: FDA-Public Use
  Company Number: None

PATIENT
  Sex: Female
  Weight: 63.5036 kg

DRUGS (1)
  1. FENOFIBRATE [Suspect]
     Indication: BLOOD CHOLESTEROL
     Dosage: ONE CAPSULE DAILY
     Dates: start: 20090602, end: 20091202

REACTIONS (3)
  - BACK PAIN [None]
  - DYSSTASIA [None]
  - MUSCLE SPASMS [None]
